FAERS Safety Report 18065932 (Version 1)
Quarter: 2020Q3

REPORT INFORMATION
  Report Type: Spontaneous
  Country: US (occurrence: US)
  Receive Date: 20200723
  Receipt Date: 20200723
  Transmission Date: 20201103
  Serious: Yes (Death)
  Sender: FDA-Public Use
  Company Number: None

PATIENT
  Age: 66 Year
  Sex: Male

DRUGS (11)
  1. FENTANYL. [Concomitant]
     Active Substance: FENTANYL
  2. ASPIRIN. [Concomitant]
     Active Substance: ASPIRIN
  3. MIDAZOLAM. [Concomitant]
     Active Substance: MIDAZOLAM
  4. CIPROFLOXACIN 400MG [Suspect]
     Active Substance: CIPROFLOXACIN
     Indication: INTRAOPERATIVE CARE
     Route: 042
     Dates: start: 20200623, end: 20200623
  5. HYDROCHLOROTHIAZIDE. [Concomitant]
     Active Substance: HYDROCHLOROTHIAZIDE
  6. INTRAOPERATIVE [Concomitant]
  7. PHENYLEPHRINE [Concomitant]
     Active Substance: PHENYLEPHRINE HYDROCHLORIDE
  8. ATORVASTATIN [Concomitant]
     Active Substance: ATORVASTATIN
  9. LISINOPRIL. [Concomitant]
     Active Substance: LISINOPRIL
  10. CIPROFLOXACIN. [Concomitant]
     Active Substance: CIPROFLOXACIN
  11. METFORMIN [Concomitant]
     Active Substance: METFORMIN HYDROCHLORIDE

REACTIONS (3)
  - Pulseless electrical activity [None]
  - Unresponsive to stimuli [None]
  - Cardiovascular insufficiency [None]

NARRATIVE: CASE EVENT DATE: 20200623
